FAERS Safety Report 24745439 (Version 1)
Quarter: 2024Q4

REPORT INFORMATION
  Report Type: Spontaneous
  Country: IN (occurrence: None)
  Receive Date: 20241217
  Receipt Date: 20241217
  Transmission Date: 20250114
  Serious: Yes (Other)
  Sender: ENCUBE ETHICALS
  Company Number: IN-Encube-001451

PATIENT
  Age: 65 Year
  Sex: Male

DRUGS (1)
  1. TRIAMCINOLONE ACETONIDE [Suspect]
     Active Substance: TRIAMCINOLONE ACETONIDE
     Indication: Cataract
     Dosage: (4 MG/0.2 ML) DEPOT INJECTION

REACTIONS (2)
  - Off label use [Unknown]
  - Central serous chorioretinopathy [Recovered/Resolved]
